FAERS Safety Report 13405464 (Version 1)
Quarter: 2017Q2

REPORT INFORMATION
  Report Type: Spontaneous
  Country: US (occurrence: US)
  Receive Date: 20170405
  Receipt Date: 20170405
  Transmission Date: 20170830
  Serious: No
  Sender: FDA-Public Use
  Company Number: US-PFIZER INC-2017141822

PATIENT
  Sex: Female
  Weight: 50 kg

DRUGS (8)
  1. DIAZEPAM. [Concomitant]
     Active Substance: DIAZEPAM
     Dosage: UNK
  2. LYRICA [Suspect]
     Active Substance: PREGABALIN
     Indication: MUSCLE SPASMS
     Dosage: 225 MG, 3X/DAY(EVERY 8 HOURS)
     Route: 048
     Dates: start: 199507, end: 201612
  3. LYRICA [Suspect]
     Active Substance: PREGABALIN
     Dosage: 225 MG, 2X/DAY
     Route: 048
     Dates: start: 201701
  4. MELOXICAM. [Concomitant]
     Active Substance: MELOXICAM
     Indication: ARTHRALGIA
     Dosage: 15 MG, 1X/DAY AT BEDTIME
  5. TYLENOL PM [Concomitant]
     Active Substance: ACETAMINOPHEN\DIPHENHYDRAMINE
     Indication: SLEEP DISORDER
     Dosage: UNK
  6. OXYCODONE [Concomitant]
     Active Substance: OXYCODONE
     Dosage: UNK
  7. MELOXICAM. [Concomitant]
     Active Substance: MELOXICAM
     Indication: ARTHRALGIA
  8. VALIUM [Concomitant]
     Active Substance: DIAZEPAM
     Indication: TREMOR
     Dosage: 5 MG, 1X/DAY AT BEDTIME

REACTIONS (4)
  - Drug ineffective for unapproved indication [Unknown]
  - Overdose [Unknown]
  - Intentional product misuse [Unknown]
  - Gait disturbance [Recovered/Resolved]

NARRATIVE: CASE EVENT DATE: 201612
